FAERS Safety Report 9868849 (Version 2)
Quarter: 2014Q1

REPORT INFORMATION
  Report Type: Spontaneous
  Country: US (occurrence: US)
  Receive Date: 20140204
  Receipt Date: 20140204
  Transmission Date: 20141002
  Serious: Yes (Death)
  Sender: FDA-Public Use
  Company Number: US-TMC-CABO-13003220

PATIENT
  Age: 88 Year
  Sex: Male

DRUGS (6)
  1. COMETRIQ [Suspect]
     Indication: PROSTATE CANCER
     Dosage: UNK
     Route: 048
     Dates: start: 20130309, end: 201307
  2. COMETRIQ [Suspect]
     Dosage: 60 MG, QOD
     Route: 048
     Dates: start: 201307, end: 20130726
  3. COMETRIQ [Suspect]
     Dosage: 120 MG, QD
     Route: 048
     Dates: start: 20130808, end: 20131227
  4. COMETRIQ [Suspect]
     Dosage: 80 MG, MON-FRI
     Route: 048
     Dates: start: 20131228, end: 20140127
  5. LUPRON [Concomitant]
  6. POTASSIUM [Concomitant]

REACTIONS (3)
  - Death [Fatal]
  - Somnolence [Recovered/Resolved]
  - Off label use [Unknown]
